FAERS Safety Report 16701671 (Version 2)
Quarter: 2019Q3

REPORT INFORMATION
  Report Type: Spontaneous
  Country: GR (occurrence: GR)
  Receive Date: 20190814
  Receipt Date: 20190919
  Transmission Date: 20191004
  Serious: Yes (Other)
  Sender: FDA-Public Use
  Company Number: GR-PFIZER INC-2019340777

PATIENT
  Sex: Female
  Weight: 62 kg

DRUGS (11)
  1. DOXORUBICIN HCL [Suspect]
     Active Substance: DOXORUBICIN HYDROCHLORIDE
     Indication: B-CELL LYMPHOMA
     Dosage: 85 MG, CYCLIC (DAY 1 CYCLES 1 FOR 6 CYCLES)
     Route: 042
     Dates: end: 20190329
  2. PREZOLON [Suspect]
     Active Substance: PREDNISOLONE
     Dosage: 100 MG, CYCLIC (DAY 1 CYCLES 5 FOR 6 CYCLES)
     Route: 042
     Dates: start: 20190506, end: 20190527
  3. PLATINOL [Suspect]
     Active Substance: CISPLATIN
     Indication: B-CELL LYMPHOMA
     Dosage: 46 MG, UNK
     Route: 042
     Dates: start: 20190506, end: 20190527
  4. RITUXIMAB/VORHYALURONIDASE ALFA [Suspect]
     Active Substance: HYALURONIDASE (HUMAN RECOMBINANT)\RITUXIMAB
     Indication: B-CELL LYMPHOMA
     Dosage: 1400 MG, CYCLIC (CYCLE 2 DAY 1 FOR 6 CYCLES)
     Route: 058
  5. ARA-C [Suspect]
     Active Substance: CYTARABINE
     Indication: B-CELL LYMPHOMA
     Dosage: 3740 MG, UNK
     Route: 042
     Dates: start: 20190506, end: 20190527
  6. CYCLOPHOSPHAMIDE. [Suspect]
     Active Substance: CYCLOPHOSPHAMIDE
     Indication: B-CELL LYMPHOMA
     Dosage: 1280 MG, CYCLIC (DAY 1 CYCLES 1 FOR 6 CYCLES)
     Route: 042
     Dates: end: 20190329
  7. RITUXIMAB. [Suspect]
     Active Substance: RITUXIMAB
     Dosage: 637 MG, CYCLIC (DAY 1 CYCLE 1 FOR 6 CYCLES)
     Route: 042
     Dates: end: 20190329
  8. VEPESID [Suspect]
     Active Substance: ETOPOSIDE
     Indication: B-CELL LYMPHOMA
     Dosage: 74 MG, UNK
     Route: 042
     Dates: start: 20190506, end: 20190527
  9. RITUXIMAB. [Suspect]
     Active Substance: RITUXIMAB
     Indication: B-CELL LYMPHOMA
     Dosage: 600 MG, UNK
     Route: 042
     Dates: start: 20181130
  10. RITUXIMAB. [Suspect]
     Active Substance: RITUXIMAB
     Dosage: 700MG (2 SALVAGE REGIMENS, 2 CYCLES)
     Route: 042
     Dates: start: 20190506, end: 20190527
  11. PREZOLON [Suspect]
     Active Substance: PREDNISOLONE
     Indication: B-CELL LYMPHOMA
     Dosage: 100 MG, CYCLIC (DAY 1 CYCLES 5 FOR 6 CYCLES)
     Route: 042
     Dates: end: 20190329

REACTIONS (3)
  - Pyrexia [Unknown]
  - Pain [Unknown]
  - Neoplasm progression [Unknown]
